FAERS Safety Report 19420938 (Version 2)
Quarter: 2021Q2

REPORT INFORMATION
  Report Type: Report from Study
  Country: DE (occurrence: DE)
  Receive Date: 20210615
  Receipt Date: 20210625
  Transmission Date: 20210717
  Serious: Yes (Hospitalization, Other)
  Sender: FDA-Public Use
  Company Number: DE-BRISTOL-MYERS SQUIBB COMPANY-BMS-2019-102836

PATIENT
  Age: 61 Year
  Sex: Male
  Weight: 65 kg

DRUGS (11)
  1. MESALAZIN [Concomitant]
     Active Substance: MESALAMINE
     Indication: PRODUCT USED FOR UNKNOWN INDICATION
     Dosage: UNK
     Route: 065
  2. NIVOLUMAB [Suspect]
     Active Substance: NIVOLUMAB
     Dosage: 53 MILLIGRAM, Q3WK
     Route: 042
     Dates: start: 20180704, end: 20180724
  3. IPILIMUMAB [Suspect]
     Active Substance: IPILIMUMAB
     Dosage: 168 MILLIGRAM
     Route: 065
     Dates: start: 20180608, end: 20180608
  4. NIVOLUMAB [Suspect]
     Active Substance: NIVOLUMAB
     Dosage: 56 MILLIGRAM
     Route: 042
     Dates: start: 20180608, end: 20180608
  5. CIPROFLOXACIN. [Concomitant]
     Active Substance: CIPROFLOXACIN
     Indication: PRODUCT USED FOR UNKNOWN INDICATION
     Route: 065
  6. NIVOLUMAB [Suspect]
     Active Substance: NIVOLUMAB
     Indication: MALIGNANT MELANOMA
     Dosage: 65 MILLIGRAM
     Route: 042
     Dates: start: 20180427, end: 20180427
  7. NIVOLUMAB [Suspect]
     Active Substance: NIVOLUMAB
     Dosage: 480 MILLIGRAM, Q4WK
     Route: 042
     Dates: start: 20180810, end: 20210212
  8. INFLIXIMAB [Concomitant]
     Active Substance: INFLIXIMAB
     Indication: PRODUCT USED FOR UNKNOWN INDICATION
     Dosage: UNK
     Route: 065
  9. IPILIMUMAB [Suspect]
     Active Substance: IPILIMUMAB
     Indication: MALIGNANT MELANOMA
     Dosage: 195 MILLIGRAM, Q3WK
     Route: 065
     Dates: start: 20180427, end: 20180427
  10. IPILIMUMAB [Suspect]
     Active Substance: IPILIMUMAB
     Dosage: 159 MILLIGRAM, Q3WK
     Route: 065
     Dates: start: 20180704, end: 20180724
  11. METHYLPREDNISOLON [METHYLPREDNISOLONE] [Concomitant]
     Active Substance: METHYLPREDNISOLONE
     Indication: PRODUCT USED FOR UNKNOWN INDICATION
     Dosage: UNK
     Route: 065

REACTIONS (5)
  - Urinary tract infection [Recovered/Resolved]
  - Colitis [Recovered/Resolved]
  - Malignant neoplasm progression [Recovered/Resolved]
  - Calculus bladder [Recovered/Resolved]
  - Off label use [Unknown]

NARRATIVE: CASE EVENT DATE: 20190308
